FAERS Safety Report 19448413 (Version 1)
Quarter: 2021Q2

REPORT INFORMATION
  Report Type: Spontaneous
  Country: US (occurrence: US)
  Receive Date: 20210622
  Receipt Date: 20210622
  Transmission Date: 20210717
  Serious: Yes (Other)
  Sender: FDA-Public Use
  Company Number: US-GLAXOSMITHKLINE-US2021AMR131173

PATIENT
  Age: 35 Year
  Sex: Female

DRUGS (5)
  1. DAPSONE. [Suspect]
     Active Substance: DAPSONE
     Indication: CUTANEOUS LUPUS ERYTHEMATOSUS
     Dosage: UNK
  2. BUPROPION. [Suspect]
     Active Substance: BUPROPION
     Indication: DEPRESSION
     Dosage: UNK
  3. PREDNISONE. [Suspect]
     Active Substance: PREDNISONE
     Indication: CUTANEOUS LUPUS ERYTHEMATOSUS
     Dosage: UNK
  4. QUINACRINE [Suspect]
     Active Substance: QUINACRINE
     Indication: CUTANEOUS LUPUS ERYTHEMATOSUS
     Dosage: UNK
  5. HYDROXYCHLOROQUINE [Suspect]
     Active Substance: HYDROXYCHLOROQUINE
     Indication: CUTANEOUS LUPUS ERYTHEMATOSUS
     Dosage: UNK

REACTIONS (7)
  - Dermatitis [Recovered/Resolved]
  - Lupus-like syndrome [Recovered/Resolved]
  - Drug ineffective [Unknown]
  - Cutaneous lupus erythematosus [Recovered/Resolved]
  - Rash erythematous [Recovered/Resolved]
  - Skin plaque [Recovered/Resolved]
  - Skin lesion [Recovered/Resolved]
